FAERS Safety Report 9631840 (Version 1)
Quarter: 2013Q4

REPORT INFORMATION
  Report Type: Spontaneous
  Country: DE (occurrence: None)
  Receive Date: 20131015
  Receipt Date: 20131015
  Transmission Date: 20140711
  Serious: Yes (Death)
  Sender: FDA-Public Use
  Company Number: AUR-APL-2013-08378

PATIENT
  Age: 45 Year
  Sex: Male
  Weight: 78 kg

DRUGS (4)
  1. METFORMIN (METFORMIN) [Suspect]
     Indication: DIABETES MELLITUS
     Dosage: (1000 MG, 2 IN 1 D)
     Route: 048
     Dates: end: 20130924
  2. ONGLYZA (SAXAGLIPTIN HYDROCHLORIDE) [Concomitant]
  3. AMLODIPINE (AMLODIPINE) [Concomitant]
  4. SIMVASTATIN (SIMVASTATIN) [Concomitant]

REACTIONS (2)
  - Lactic acidosis [None]
  - Multi-organ failure [None]
